FAERS Safety Report 7413285-4 (Version None)
Quarter: 2011Q2

REPORT INFORMATION
  Report Type: 
  Country: None (occurrence: None)
  Receive Date: 20110413
  Receipt Date: 20110411
  Transmission Date: 20111010
  Serious: Yes (Hospitalization, Disabling, Other)
  Sender: FDA-Public Use
  Company Number: US-PFIZER INC-2010181782

PATIENT
  Sex: Female

DRUGS (9)
  1. TOPAMAX [Concomitant]
     Indication: HEADACHE
  2. XANAX [Concomitant]
     Indication: CONVULSION
     Dosage: UNK
     Dates: start: 20030101
  3. TOPAMAX [Concomitant]
     Indication: CONVULSION
     Dosage: UNK
     Dates: start: 20040101
  4. LORTAB [Concomitant]
     Indication: PAIN
     Dosage: UNK
     Dates: start: 20030101, end: 20100101
  5. TRAZODONE [Concomitant]
     Indication: DEPRESSION
  6. XANAX [Concomitant]
     Indication: ANXIETY
  7. CHANTIX [Suspect]
     Indication: SMOKING CESSATION THERAPY
     Dosage: STARTER PACK AND TWO CONTINUING PACKS
     Dates: start: 20070215, end: 20070401
  8. TRAZODONE [Concomitant]
     Indication: SLEEP DISORDER
     Dosage: UNK
     Dates: start: 20010101
  9. METHADONE [Concomitant]
     Indication: PAIN
     Dosage: UNK
     Dates: start: 20050101, end: 20100101

REACTIONS (5)
  - LOSS OF CONSCIOUSNESS [None]
  - BIPOLAR DISORDER [None]
  - ANXIETY [None]
  - CONVULSION [None]
  - DEPRESSION [None]
